FAERS Safety Report 15812194 (Version 1)
Quarter: 2019Q1

REPORT INFORMATION
  Report Type: Spontaneous
  Country: US (occurrence: US)
  Receive Date: 20190111
  Receipt Date: 20190111
  Transmission Date: 20190417
  Serious: Yes (Life-Threatening, Hospitalization, Other)
  Sender: FDA-Public Use
  Company Number: US-ACP NIMBLE BUYER INC-GW2018US000135

PATIENT

DRUGS (2)
  1. ACYCLOVIR. [Suspect]
     Active Substance: ACYCLOVIR
     Dosage: 200 MG, BID
     Route: 048
  2. ACYCLOVIR. [Suspect]
     Active Substance: ACYCLOVIR
     Indication: HERPES ZOSTER
     Dosage: 5 MG/KG, QD
     Route: 042

REACTIONS (4)
  - Neurotoxicity [Recovered/Resolved]
  - Drug level above therapeutic [Recovered/Resolved]
  - Seizure [Recovered/Resolved]
  - Subdural haematoma [Recovered/Resolved]
